FAERS Safety Report 18527051 (Version 5)
Quarter: 2021Q3

REPORT INFORMATION
  Report Type: Other
  Country: AT (occurrence: AT)
  Receive Date: 20201120
  Receipt Date: 20210928
  Transmission Date: 20211014
  Serious: Yes (Hospitalization, Other)
  Sender: FDA-Public Use
  Company Number: AT-ROCHE-2718109

PATIENT
  Age: 60 Year
  Sex: Female
  Weight: 80 kg

DRUGS (55)
  1. PERTUZUMAB. [Suspect]
     Active Substance: PERTUZUMAB
     Indication: BREAST CANCER METASTATIC
     Dosage: DOSE ON: 21/NOV/2017
     Route: 042
     Dates: start: 20170306
  2. TRASTUZUMAB EMTANSINE [Suspect]
     Active Substance: ADO-TRASTUZUMAB EMTANSINE
     Indication: BREAST CANCER METASTATIC
     Dosage: DOSE ON 24/APR/2018, 15/MAY/2018
     Route: 042
     Dates: start: 20171212
  3. SUCRALFAT [Concomitant]
     Active Substance: SUCRALFATE
     Dates: end: 20190907
  4. LIXIANA [Concomitant]
     Active Substance: EDOXABAN TOSYLATE
     Indication: PULMONARY EMBOLISM
     Dosage: ONGOING = NOT CHECKED
     Dates: start: 20190315, end: 20190907
  5. PARACODIN [Concomitant]
     Indication: DYSPNOEA
     Dosage: ONGOING = CHECKED
     Dates: start: 20190510
  6. MEXALEN [Concomitant]
     Active Substance: ACETAMINOPHEN
  7. ULSAL [Concomitant]
     Active Substance: RANITIDINE HYDROCHLORIDE
  8. KYTRIL [Concomitant]
     Active Substance: GRANISETRON HYDROCHLORIDE
     Dates: start: 20171212, end: 20181013
  9. EMEND [Concomitant]
     Active Substance: APREPITANT
     Dates: start: 20180127, end: 20181013
  10. BUPRENORPHIN [Concomitant]
     Active Substance: BUPRENORPHINE
  11. LAPATINIB DITOSYLATE [Concomitant]
     Active Substance: LAPATINIB DITOSYLATE
     Route: 048
     Dates: start: 20190116, end: 20190206
  12. ZYRTEC (AUSTRIA) [Concomitant]
  13. VENDAL [Concomitant]
     Active Substance: MORPHINE
  14. VINORELBINE [Suspect]
     Active Substance: VINORELBINE TARTRATE
     Indication: BREAST CANCER METASTATIC
     Dosage: ONE DOSE ON 30/MAY/2017, 27/JUN/2017
     Route: 048
     Dates: start: 20170306
  15. EMEND [Concomitant]
     Active Substance: APREPITANT
     Dates: start: 20180128, end: 20181014
  16. PANTOLOC [Concomitant]
     Active Substance: PANTOPRAZOLE SODIUM
     Dosage: ONGOING = CHECKED
     Dates: start: 20170302
  17. HYDAL [Concomitant]
     Active Substance: HYDROMORPHONE HYDROCHLORIDE
     Indication: BACK PAIN
     Dates: start: 20180628, end: 20190226
  18. MIRTAZAPIN [Concomitant]
     Active Substance: MIRTAZAPINE
     Dosage: ONGOING = NOT CHECKED
     Dates: start: 20190315, end: 20190907
  19. DOXYCYCLIN [Concomitant]
     Active Substance: DOXYCYCLINE
     Indication: RESPIRATORY TRACT INFECTION
     Dosage: ONGOING = NOT CHECKED
     Dates: start: 20190502, end: 20190509
  20. AUGMENTIN [Concomitant]
     Active Substance: AMOXICILLIN\CLAVULANATE POTASSIUM
     Indication: RESPIRATORY TRACT INFECTION
     Dosage: ONGOING = NOT CHECKED
     Dates: start: 20190509, end: 20190516
  21. SOLU?DACORTIN [Concomitant]
     Active Substance: PREDNISOLONE SODIUM SUCCINATE
  22. LAPATINIB [Suspect]
     Active Substance: LAPATINIB
     Indication: BREAST CANCER METASTATIC
     Route: 048
     Dates: start: 20181227, end: 20190116
  23. LAEVOLAC [Concomitant]
     Active Substance: LACTULOSE
     Dates: start: 20171212, end: 20190907
  24. DAFLON [Concomitant]
     Dates: end: 20190907
  25. NOVALGIN (AUSTRIA) [Concomitant]
     Indication: BACK PAIN
     Dates: start: 20170327, end: 20191003
  26. LYRICA [Concomitant]
     Active Substance: PREGABALIN
     Indication: BACK PAIN
     Dates: start: 20181227, end: 20190226
  27. TEMESTA [Concomitant]
     Dates: start: 20190226
  28. FORTECORTIN [Concomitant]
     Active Substance: DEXAMETHASONE
     Dates: start: 20190215, end: 20190907
  29. FENISTIL [Concomitant]
     Active Substance: DIMETHINDENE
  30. LAPATINIB DITOSYLATE [Concomitant]
     Active Substance: LAPATINIB DITOSYLATE
     Route: 048
     Dates: start: 20181227, end: 20190116
  31. TRASTUZUMAB EMTANSINE [Suspect]
     Active Substance: ADO-TRASTUZUMAB EMTANSINE
     Dosage: MOST RECENT DOSE PRIOR TO THE EVENT
     Route: 042
     Dates: start: 20180515
  32. CAPECITABINE. [Suspect]
     Active Substance: CAPECITABINE
     Indication: BREAST CANCER METASTATIC
     Dosage: DOSE ON: 04/SEP/2018, 10/SEP/2018, 27/MAY/2019
     Route: 048
     Dates: start: 20180904, end: 20180910
  33. NOVALGIN (AUSTRIA) [Concomitant]
     Indication: RESPIRATORY TRACT INFECTION
     Dates: start: 20190315, end: 20190907
  34. HYDAL [Concomitant]
     Active Substance: HYDROMORPHONE HYDROCHLORIDE
     Dates: start: 20181227, end: 20190907
  35. LASIX [Concomitant]
     Active Substance: FUROSEMIDE
     Dates: end: 20190907
  36. KALIORAL [Concomitant]
     Dosage: ONGOING = CHECKED
  37. DEXAMETHASON [Concomitant]
     Active Substance: DEXAMETHASONE
     Dates: start: 20170829, end: 20181013
  38. DIAMOX SEQUELS [Concomitant]
     Active Substance: ACETAZOLAMIDE
  39. MANNIT [Concomitant]
  40. TRASTUZUMAB. [Suspect]
     Active Substance: TRASTUZUMAB
     Indication: BREAST CANCER METASTATIC
     Dosage: DOSE ON 21/NOV/2017, 04/SEP/2018, 23/OCT/2018, 27/MAY/2019
     Route: 042
     Dates: start: 20170306
  41. LAPATINIB [Suspect]
     Active Substance: LAPATINIB
     Route: 048
     Dates: start: 20190116, end: 20190206
  42. CONCOR COR [Concomitant]
     Active Substance: BISOPROLOL FUMARATE
     Dates: end: 20190907
  43. VENLAFAB [Concomitant]
     Active Substance: VENLAFAXINE HYDROCHLORIDE
     Dosage: ONGOING = NOT CHECKED
     Dates: start: 20190315, end: 20190907
  44. CORTISON [Concomitant]
     Active Substance: CORTISONE ACETATE
     Indication: RESPIRATORY TRACT INFECTION
     Dosage: ONGOING = NOT CHECKED
     Dates: start: 20190615, end: 20190615
  45. ZOLPIDEM [Concomitant]
     Active Substance: ZOLPIDEM TARTRATE
     Dates: start: 20190215, end: 20190315
  46. PASPERTIN [Concomitant]
     Dates: start: 20171212, end: 20190907
  47. NOVALGIN (AUSTRIA) [Concomitant]
     Dates: start: 20190509, end: 20190509
  48. BAMBEC [Concomitant]
     Active Substance: BAMBUTEROL HYDROCHLORIDE
  49. TRITTICO [Concomitant]
     Active Substance: TRAZODONE HYDROCHLORIDE
     Dates: start: 20181215, end: 20190226
  50. EMEND [Concomitant]
     Active Substance: APREPITANT
     Dates: start: 20180129, end: 20181015
  51. NOVALGIN (AUSTRIA) [Concomitant]
     Indication: HEPATIC PAIN
     Dates: start: 20171212, end: 20190907
  52. FORTECORTIN [Concomitant]
     Active Substance: DEXAMETHASONE
     Dates: start: 20190215, end: 20190215
  53. MIRTAZAPIN [Concomitant]
     Active Substance: MIRTAZAPINE
     Dosage: ONGOING = CHECKED
     Dates: start: 20190315
  54. LIXIANA [Concomitant]
     Active Substance: EDOXABAN TOSYLATE
     Indication: PULMONARY EMBOLISM
     Dosage: ONGOING = CHECKED
     Dates: start: 20190315
  55. TEMGESIC [Concomitant]
     Active Substance: BUPRENORPHINE HYDROCHLORIDE

REACTIONS (18)
  - Vertigo [Recovered/Resolved]
  - Vertigo [Not Recovered/Not Resolved]
  - Blindness [Recovered/Resolved with Sequelae]
  - Vomiting [Recovered/Resolved]
  - Polyneuropathy [Not Recovered/Not Resolved]
  - Cough [Recovered/Resolved]
  - Epistaxis [Recovered/Resolved]
  - Chills [Recovered/Resolved]
  - Nausea [Recovered/Resolved]
  - Myalgia [Recovered/Resolved]
  - Headache [Recovered/Resolved]
  - Angina pectoris [Recovered/Resolved]
  - Polyneuropathy [Recovered/Resolved]
  - Headache [Recovered/Resolved]
  - Headache [Recovered/Resolved]
  - Headache [Unknown]
  - Bone pain [Recovered/Resolved]
  - Vomiting [Recovered/Resolved]

NARRATIVE: CASE EVENT DATE: 20170306
